FAERS Safety Report 9855438 (Version 1)
Quarter: 2014Q1

REPORT INFORMATION
  Report Type: Spontaneous
  Country: US (occurrence: US)
  Receive Date: 20140130
  Receipt Date: 20140130
  Transmission Date: 20141002
  Serious: Yes (Hospitalization)
  Sender: FDA-Public Use
  Company Number: US-CELGENEUS-163-POMAL-14013735

PATIENT
  Age: 71 Year
  Sex: Female
  Weight: 76.27 kg

DRUGS (9)
  1. POMALYST [Suspect]
     Indication: PLASMA CELL MYELOMA
     Dosage: 4 MILLIGRAM
     Route: 048
     Dates: start: 20130905
  2. WARFARIN [Concomitant]
     Indication: ANTICOAGULANT THERAPY
     Route: 065
  3. LYRICA [Concomitant]
     Indication: NEUROPATHY PERIPHERAL
     Route: 065
  4. DEXAMETHASONE [Concomitant]
     Indication: CHEMOTHERAPY
     Route: 065
  5. OMEPRAZOLE [Concomitant]
     Indication: GASTROOESOPHAGEAL REFLUX DISEASE
     Route: 065
  6. VITAMIN B6 [Concomitant]
     Indication: VITAMIN SUPPLEMENTATION
     Route: 065
  7. CITRACAL PLUS [Concomitant]
     Indication: VITAMIN SUPPLEMENTATION
     Route: 065
  8. HYDROCODONE/APAP [Concomitant]
     Indication: PAIN
     Dosage: 10/650MG
     Route: 065
  9. LOPERAMIDE HCL [Concomitant]
     Indication: DIARRHOEA
     Route: 065

REACTIONS (3)
  - Fall [Not Recovered/Not Resolved]
  - Hip fracture [Not Recovered/Not Resolved]
  - Confusional state [Not Recovered/Not Resolved]
